FAERS Safety Report 9344402 (Version 1)
Quarter: 2013Q2

REPORT INFORMATION
  Report Type: Spontaneous
  Country: BR (occurrence: BR)
  Receive Date: 20130612
  Receipt Date: 20130612
  Transmission Date: 20140414
  Serious: Yes (Hospitalization)
  Sender: FDA-Public Use
  Company Number: BR-ASTRAZENECA-2013SE41543

PATIENT
  Age: 65 Year
  Sex: Female
  Weight: 86 kg

DRUGS (28)
  1. NEXIUM [Suspect]
     Indication: GASTROOESOPHAGEAL REFLUX DISEASE
     Route: 048
  2. NEXIUM [Suspect]
     Indication: GASTRIC POLYPS
     Route: 048
  3. NEXIUM [Suspect]
     Indication: GASTRIC DISORDER
     Route: 048
  4. NEXIUM [Suspect]
     Indication: GASTRITIS
     Route: 048
  5. NEXIUM [Suspect]
     Indication: GASTROOESOPHAGEAL REFLUX DISEASE
     Dosage: MEDLEY, TWO TABLETS PER DAY
     Route: 048
     Dates: start: 2013, end: 2013
  6. NEXIUM [Suspect]
     Indication: GASTRIC POLYPS
     Dosage: MEDLEY, TWO TABLETS PER DAY
     Route: 048
     Dates: start: 2013, end: 2013
  7. NEXIUM [Suspect]
     Indication: GASTRIC DISORDER
     Dosage: MEDLEY, TWO TABLETS PER DAY
     Route: 048
     Dates: start: 2013, end: 2013
  8. NEXIUM [Suspect]
     Indication: GASTRITIS
     Dosage: MEDLEY, TWO TABLETS PER DAY
     Route: 048
     Dates: start: 2013, end: 2013
  9. NEXIUM [Suspect]
     Indication: GASTROOESOPHAGEAL REFLUX DISEASE
     Route: 048
  10. NEXIUM [Suspect]
     Indication: GASTRIC POLYPS
     Route: 048
  11. NEXIUM [Suspect]
     Indication: GASTRIC DISORDER
     Route: 048
  12. NEXIUM [Suspect]
     Indication: GASTRITIS
     Route: 048
  13. NEXIUM [Suspect]
     Indication: GASTROOESOPHAGEAL REFLUX DISEASE
     Route: 048
     Dates: start: 2013, end: 2013
  14. NEXIUM [Suspect]
     Indication: GASTRIC POLYPS
     Route: 048
     Dates: start: 2013, end: 2013
  15. NEXIUM [Suspect]
     Indication: GASTRIC DISORDER
     Route: 048
     Dates: start: 2013, end: 2013
  16. NEXIUM [Suspect]
     Indication: GASTRITIS
     Route: 048
     Dates: start: 2013, end: 2013
  17. OMEPRAZOLE [Suspect]
     Indication: GASTROOESOPHAGEAL REFLUX DISEASE
     Route: 048
     Dates: start: 201304
  18. OMEPRAZOLE [Suspect]
     Indication: GASTRIC POLYPS
     Route: 048
     Dates: start: 201304
  19. OMEPRAZOLE [Suspect]
     Indication: GASTRIC DISORDER
     Route: 048
     Dates: start: 201304
  20. OMEPRAZOLE [Suspect]
     Indication: GASTRITIS
     Route: 048
     Dates: start: 201304
  21. BROMOPRIDE [Suspect]
     Route: 065
  22. TECTA [Suspect]
     Dosage: PRN
     Route: 065
  23. RIVOTRIL [Concomitant]
     Indication: DEPRESSION
     Dosage: PRN
  24. RIVOTRIL [Concomitant]
     Indication: PANIC DISORDER
     Dosage: PRN
  25. LORAX [Concomitant]
     Indication: DEPRESSION
     Dosage: PRN
  26. LORAX [Concomitant]
     Indication: PANIC DISORDER
     Dosage: PRN
  27. VALIUM [Concomitant]
     Indication: DEPRESSION
     Dosage: PRN
  28. VALIUM [Concomitant]
     Indication: PANIC DISORDER
     Dosage: PRN

REACTIONS (9)
  - Pancreatic disorder [Unknown]
  - Abdominal pain upper [Recovered/Resolved]
  - Nervousness [Unknown]
  - Nightmare [Unknown]
  - Crying [Unknown]
  - Oesophageal pain [Unknown]
  - Fear [Unknown]
  - Weight decreased [Not Recovered/Not Resolved]
  - Decreased appetite [Not Recovered/Not Resolved]
